FAERS Safety Report 6604446-2 (Version None)
Quarter: 2010Q1

REPORT INFORMATION
  Report Type: 
  Country: None (occurrence: None)
  Receive Date: 20100226
  Receipt Date: 20091014
  Transmission Date: 20100710
  Serious: No
  Sender: FDA-Public Use
  Company Number: A0811808A

PATIENT
  Age: 54 Year
  Sex: Female

DRUGS (7)
  1. LAMOTRIGINE [Suspect]
     Indication: BIPOLAR DISORDER
     Dosage: 100MG THREE TIMES PER DAY
     Route: 048
     Dates: start: 20070101, end: 20070101
  2. EFFEXOR [Concomitant]
  3. LISINOPRIL [Concomitant]
  4. LEVOTHYROXINE SODIUM [Concomitant]
  5. GLIPIZIDE [Concomitant]
  6. ARIMIDEX [Concomitant]
  7. METFORMIN HYDROCHLORIDE [Concomitant]

REACTIONS (4)
  - BEDRIDDEN [None]
  - DEPRESSION [None]
  - DRUG INEFFECTIVE [None]
  - SOCIAL AVOIDANT BEHAVIOUR [None]
